FAERS Safety Report 11089950 (Version 1)
Quarter: 2015Q2

REPORT INFORMATION
  Report Type: Spontaneous
  Country: JP (occurrence: JP)
  Receive Date: 20150505
  Receipt Date: 20150505
  Transmission Date: 20150821
  Serious: Yes (Death)
  Sender: FDA-Public Use
  Company Number: JP-MALLINCKRODT-T201404450

PATIENT
  Age: 77 Year
  Sex: Female
  Weight: 42 kg

DRUGS (15)
  1. PURSENNID [Concomitant]
     Active Substance: SENNOSIDES A AND B
     Dosage: 36 MG, UNK
     Route: 048
     Dates: end: 20141215
  2. CARBOCISTEINE [Concomitant]
     Active Substance: CARBOCYSTEINE
     Dosage: 1500 MG, UNK
     Route: 048
     Dates: end: 20141215
  3. RINDERON V [Concomitant]
     Active Substance: BETAMETHASONE VALERATE
     Dosage: 2 MG
     Route: 058
     Dates: start: 20141216, end: 20150201
  4. RINDERON V [Concomitant]
     Active Substance: BETAMETHASONE VALERATE
     Dosage: 1 MG, UNK
     Route: 048
     Dates: end: 20141215
  5. METHADONE [Suspect]
     Active Substance: METHADONE HYDROCHLORIDE
     Indication: CANCER PAIN
     Dosage: 5 MG, (DAILY DOSE 15 MG)
     Route: 048
     Dates: start: 20141024, end: 20141030
  6. METHADONE [Suspect]
     Active Substance: METHADONE HYDROCHLORIDE
     Dosage: 10 MG, (DAILY DOSE 30 MG)
     Route: 048
     Dates: start: 20141107, end: 20141207
  7. LOXOPROFEN SODIUM [Concomitant]
     Active Substance: LOXOPROFEN SODIUM
     Dosage: 180 MG, UNK
     Route: 048
     Dates: end: 20141217
  8. HACHIAZULE [Concomitant]
     Dosage: 4 G, UNK
     Route: 049
     Dates: end: 20141211
  9. OXINORM [Suspect]
     Active Substance: OXYCODONE HYDROCHLORIDE
     Indication: ANALGESIC THERAPY
     Dosage: 20 MG, (DAILY DOSE 40-60 MG)
     Route: 048
     Dates: start: 20141023
  10. MAGMITT [Concomitant]
     Active Substance: MAGNESIUM OXIDE
     Dosage: 990 MG, UNK
     Route: 048
     Dates: end: 20141215
  11. METHADONE [Suspect]
     Active Substance: METHADONE HYDROCHLORIDE
     Dosage: DAILY DOSE 45 MG
     Route: 048
     Dates: start: 20141208, end: 20150131
  12. LANSOPRAZOLE. [Concomitant]
     Active Substance: LANSOPRAZOLE
     Dosage: 15 MG, UNK
     Route: 048
     Dates: end: 20141217
  13. METHADONE [Suspect]
     Active Substance: METHADONE HYDROCHLORIDE
     Dosage: 10 MG, (DAILY DOSE 20 MG)
     Route: 048
     Dates: start: 20141031, end: 20141106
  14. ABSTRAL [Concomitant]
     Active Substance: FENTANYL CITRATE
     Dosage: 100MCG, P.R.N.
     Route: 060
     Dates: start: 20141222
  15. MORPHINE HYDROCHLORIDE [Concomitant]
     Active Substance: MORPHINE HYDROCHLORIDE
     Dosage: 10 MG
     Route: 058
     Dates: start: 20150128, end: 20150131

REACTIONS (6)
  - Pleural mesothelioma malignant [Fatal]
  - Pollakiuria [Recovered/Resolved]
  - Neurogenic bladder [Recovered/Resolved]
  - Somnolence [Recovered/Resolved]
  - Delirium [Not Recovered/Not Resolved]
  - Insomnia [Recovered/Resolved]

NARRATIVE: CASE EVENT DATE: 20141108
